FAERS Safety Report 20206198 (Version 1)
Quarter: 2021Q4

REPORT INFORMATION
  Report Type: Spontaneous
  Country: US (occurrence: US)
  Receive Date: 20211220
  Receipt Date: 20211220
  Transmission Date: 20220303
  Serious: Yes (Other)
  Sender: FDA-Public Use
  Company Number: US-NOVARTISPH-NVSC2021US284328

PATIENT
  Sex: Male

DRUGS (2)
  1. CARBOPLATIN [Suspect]
     Active Substance: CARBOPLATIN
     Indication: Astrocytoma
     Dosage: UNK
     Route: 065
     Dates: end: 20111118
  2. VINCRISTINE [Suspect]
     Active Substance: VINCRISTINE
     Indication: Astrocytoma
     Dosage: UNK
     Route: 065
     Dates: end: 20111118

REACTIONS (5)
  - Malignant neoplasm progression [Unknown]
  - Astrocytoma [Unknown]
  - Moyamoya disease [Unknown]
  - Tumour haemorrhage [Unknown]
  - Nephropathy toxic [Unknown]

NARRATIVE: CASE EVENT DATE: 20120801
